FAERS Safety Report 6248718-2 (Version None)
Quarter: 2009Q2

REPORT INFORMATION
  Report Type: 
  Country: None (occurrence: None)
  Receive Date: 20090624
  Receipt Date: 20090608
  Transmission Date: 20091009
  Serious: Yes (Death, Hospitalization)
  Sender: FDA-Public Use
  Company Number: 2008AL009219

PATIENT
  Age: 82 Year
  Sex: Female

DRUGS (12)
  1. DIGOXIN [Suspect]
     Dosage: 0.125MG, DAILY, PO
     Route: 048
     Dates: start: 20070501
  2. TOPROL-XL [Concomitant]
  3. ARICEPT [Concomitant]
  4. LASIX [Concomitant]
  5. GLYBYRIDE [Concomitant]
  6. ASPIRIN [Concomitant]
  7. COUMADIN [Concomitant]
  8. RISPERDAL [Concomitant]
  9. METOPROLOL TARTRATE [Concomitant]
  10. BACTRIM [Concomitant]
  11. CARDIZEM [Concomitant]
  12. ZYPREXA [Concomitant]

REACTIONS (11)
  - ACTIVITIES OF DAILY LIVING IMPAIRED [None]
  - ANXIETY [None]
  - ATRIAL FIBRILLATION [None]
  - CARDIOACTIVE DRUG LEVEL INCREASED [None]
  - ECONOMIC PROBLEM [None]
  - INJURY [None]
  - MENTAL STATUS CHANGES [None]
  - MYOCARDIAL INFARCTION [None]
  - PAIN [None]
  - SOCIAL PROBLEM [None]
  - SURGERY [None]
